FAERS Safety Report 6914623-9 (Version None)
Quarter: 2010Q3

REPORT INFORMATION
  Report Type: 
  Country: None (occurrence: None)
  Receive Date: 20100805
  Receipt Date: 20100805
  Transmission Date: 20110219
  Serious: Yes (Hospitalization)
  Sender: FDA-Public Use
  Company Number: None

PATIENT
  Age: 75 Year
  Sex: Female
  Weight: 84.4 kg

DRUGS (2)
  1. HYDROCODONE BITARTRATE AND ACETAMINOPHEN [Suspect]
     Indication: PAIN
     Dosage: 5/500 MG ONCE PO
     Route: 048
     Dates: start: 20100719, end: 20100719
  2. RISPERIDONE [Suspect]
     Indication: SCHIZOAFFECTIVE DISORDER
     Dosage: 0.5 MG AM PO
     Route: 048
     Dates: start: 20070907

REACTIONS (3)
  - DIZZINESS [None]
  - HEADACHE [None]
  - SEDATION [None]
